FAERS Safety Report 23019716 (Version 1)
Quarter: 2023Q4

REPORT INFORMATION
  Report Type: Spontaneous
  Country: US (occurrence: US)
  Receive Date: 20231003
  Receipt Date: 20231003
  Transmission Date: 20240110
  Serious: No
  Sender: FDA-Public Use
  Company Number: US-drreddys-SPO/USA/23/0176116

PATIENT
  Age: 18 Year
  Sex: Female

DRUGS (1)
  1. ZENATANE [Suspect]
     Active Substance: ISOTRETINOIN
     Indication: Product used for unknown indication
     Dates: start: 20230608

REACTIONS (5)
  - Lip swelling [Unknown]
  - Abdominal discomfort [Unknown]
  - Hypersensitivity [Unknown]
  - Flushing [Unknown]
  - Epistaxis [Unknown]

NARRATIVE: CASE EVENT DATE: 20230827
